FAERS Safety Report 5581815-3 (Version None)
Quarter: 2008Q1

REPORT INFORMATION
  Report Type: 
  Country: None (occurrence: None)
  Receive Date: 20080104
  Receipt Date: 20071221
  Transmission Date: 20080703
  Serious: Yes (Other)
  Sender: FDA-Public Use
  Company Number: DE-ELI_LILLY_AND_COMPANY-DE200801000002

PATIENT
  Age: 69 Year
  Sex: Female

DRUGS (9)
  1. GEMZAR [Suspect]
     Indication: PANCREATIC CARCINOMA
     Dosage: 1700 MG, WEEKLY (1/W)
     Route: 042
     Dates: start: 20070219, end: 20070626
  2. GEMZAR [Suspect]
     Dosage: 1700 MG, WEEKLY (1/W)
     Route: 042
     Dates: start: 20070807, end: 20071030
  3. L-THYROXINE [Concomitant]
     Dosage: UNK, UNKNOWN
     Route: 065
  4. DURAGESIC-100 [Concomitant]
     Dosage: UNK, UNKNOWN
     Route: 065
     Dates: start: 20070719
  5. ISOPTIN [Concomitant]
     Dosage: UNK, UNKNOWN
     Route: 065
     Dates: start: 20070718
  6. TOREM [Concomitant]
     Dosage: UNK, UNKNOWN
     Route: 065
  7. BIOTIN [Concomitant]
     Dosage: UNK, UNKNOWN
     Route: 065
  8. RAMIPRIL [Concomitant]
     Dosage: UNK, UNKNOWN
     Route: 065
  9. AQUAPHOR [Concomitant]
     Dosage: UNK, UNKNOWN
     Route: 065

REACTIONS (3)
  - BLOOD CREATININE INCREASED [None]
  - OEDEMA PERIPHERAL [None]
  - PLEURAL EFFUSION [None]
